FAERS Safety Report 22891363 (Version 11)
Quarter: 2025Q4

REPORT INFORMATION
  Report Type: Report from Study
  Country: JP (occurrence: JP)
  Receive Date: 20230901
  Receipt Date: 20251215
  Transmission Date: 20260118
  Serious: Yes (Other)
  Sender: TAKEDA
  Company Number: JP-TAKEDA-2023TJP005147

PATIENT
  Age: 16 Year
  Sex: Male
  Weight: 31.4 kg

DRUGS (27)
  1. TEDUGLUTIDE [Suspect]
     Active Substance: TEDUGLUTIDE
     Indication: Short-bowel syndrome
     Dosage: 0.05 MILLIGRAM/KILOGRAM
  2. TEDUGLUTIDE [Suspect]
     Active Substance: TEDUGLUTIDE
  3. TEDUGLUTIDE [Suspect]
     Active Substance: TEDUGLUTIDE
  4. TEDUGLUTIDE [Suspect]
     Active Substance: TEDUGLUTIDE
  5. SODIUM CHLORIDE [Concomitant]
     Active Substance: SODIUM CHLORIDE
     Indication: Short-bowel syndrome
     Dosage: UNK
  6. CALCIUM GLUCONATE [Concomitant]
     Active Substance: CALCIUM GLUCONATE
     Indication: Short-bowel syndrome
     Dosage: UNK
  7. PLEAMIN P [Concomitant]
     Indication: Short-bowel syndrome
     Dosage: UNK
  8. CYANOCOBALAMIN\PYRIDOXAMINE HYDROCHLORIDE\THIAMINE HYDROCHLORIDE [Concomitant]
     Active Substance: CYANOCOBALAMIN\PYRIDOXAMINE HYDROCHLORIDE\THIAMINE HYDROCHLORIDE
     Indication: Short-bowel syndrome
     Dosage: UNK
  9. MIYA-BM [Concomitant]
     Active Substance: CLOSTRIDIUM BUTYRICUM SPORES STRAIN M-55
     Indication: Short-bowel syndrome
     Dosage: UNK
  10. Glycyron [Concomitant]
     Indication: Short-bowel syndrome
     Dosage: UNK
  11. TAURINE [Concomitant]
     Active Substance: TAURINE
     Indication: Short-bowel syndrome
     Dosage: UNK
  12. ACOTIAMIDE HYDROCHLORIDE [Concomitant]
     Active Substance: ACOTIAMIDE HYDROCHLORIDE
     Indication: Short-bowel syndrome
     Dosage: UNK
  13. CELLULASE\DIASTASE\LIPASE [Concomitant]
     Active Substance: CELLULASE\DIASTASE\LIPASE
     Indication: Short-bowel syndrome
     Dosage: UNK
  14. ICOSAPENT [Concomitant]
     Active Substance: ICOSAPENT
     Indication: Short-bowel syndrome
     Dosage: UNK
  15. LANSOPRAZOLE [Concomitant]
     Active Substance: LANSOPRAZOLE
     Indication: Short-bowel syndrome
     Dosage: UNK
  16. HERBALS [Concomitant]
     Active Substance: HERBALS
     Indication: Short-bowel syndrome
     Dosage: UNK
  17. LEVOCARNITINE [Concomitant]
     Active Substance: LEVOCARNITINE
     Indication: Short-bowel syndrome
     Dosage: UNK
  18. HERBALS [Concomitant]
     Active Substance: HERBALS
     Indication: Short-bowel syndrome
     Dosage: UNK
  19. AMINO ACIDS\DEXTROSE\ELECTROLYTES NOS [Concomitant]
     Active Substance: AMINO ACIDS\DEXTROSE\ELECTROLYTES NOS
     Indication: Short-bowel syndrome
     Dosage: UNK
  20. CALCIUM GLUCONATE\DEXTROSE\MAGNESIUM SULFATE\POTASSIUM ACETATE\POTASSI [Concomitant]
     Active Substance: CALCIUM GLUCONATE\DEXTROSE\MAGNESIUM SULFATE\POTASSIUM ACETATE\POTASSIUM PHOSPHATE, DIBASIC\ZINC SUL
     Indication: Short-bowel syndrome
     Dosage: UNK
  21. PULMICORT TURBUHALER [Concomitant]
     Active Substance: BUDESONIDE
     Dosage: UNK
  22. MONTELUKAST SODIUM [Concomitant]
     Active Substance: MONTELUKAST SODIUM
     Dosage: UNK
  23. CARBOCYSTEINE [Concomitant]
     Active Substance: CARBOCYSTEINE
     Dosage: UNK
  24. XYZAL [Concomitant]
     Active Substance: LEVOCETIRIZINE DIHYDROCHLORIDE
     Dosage: UNK
  25. SOYBEAN OIL [Concomitant]
     Active Substance: SOYBEAN OIL
     Indication: Short-bowel syndrome
     Dosage: UNK
  26. CUPRIC SULFATE\FERRIC CHLORIDE\MANGANESE CHLORIDE\POTASSIUM IODIDE\ZIN [Concomitant]
     Active Substance: CUPRIC SULFATE\FERRIC CHLORIDE\MANGANESE CHLORIDE\POTASSIUM IODIDE\ZINC SULFATE
     Dosage: UNK
  27. GENOTROPIN [Concomitant]
     Active Substance: SOMATROPIN
     Dosage: UNK

REACTIONS (10)
  - Device related infection [Recovering/Resolving]
  - Fear of injection [Unknown]
  - Amnesia [Unknown]
  - Constipation [Unknown]
  - Amylase increased [Recovered/Resolved]
  - Injection site swelling [Recovering/Resolving]
  - Rhinitis allergic [Recovering/Resolving]
  - Abdominal pain [Recovering/Resolving]
  - Therapy partial responder [Unknown]
  - Therapeutic response decreased [Unknown]

NARRATIVE: CASE EVENT DATE: 20220311
